FAERS Safety Report 16541590 (Version 3)
Quarter: 2019Q3

REPORT INFORMATION
  Report Type: Spontaneous
  Country: PL (occurrence: PL)
  Receive Date: 20190708
  Receipt Date: 20190716
  Transmission Date: 20191004
  Serious: Yes (Life-Threatening, Hospitalization)
  Sender: FDA-Public Use
  Company Number: PL-PFIZER INC-2019283715

PATIENT
  Age: 77 Year
  Sex: Male

DRUGS (2)
  1. MORPHINE SULFATE. [Suspect]
     Active Substance: MORPHINE SULFATE
     Indication: PAIN
     Dosage: 5 MG, 4X/DAY
     Route: 058
     Dates: start: 201802, end: 201802
  2. MORPHINE SULFATE. [Suspect]
     Active Substance: MORPHINE SULFATE
     Indication: PAIN
     Dosage: 400 MG, DAILY (INSTEAD OF 40 MG, SLOW RELEASE)
     Route: 048
     Dates: start: 201802, end: 201802

REACTIONS (4)
  - Multiple organ dysfunction syndrome [Recovered/Resolved]
  - Overdose [Unknown]
  - Psychomotor hyperactivity [Recovered/Resolved]
  - Product prescribing error [Unknown]

NARRATIVE: CASE EVENT DATE: 201802
